FAERS Safety Report 15550116 (Version 2)
Quarter: 2018Q4

REPORT INFORMATION
  Report Type: Spontaneous
  Country: US (occurrence: US)
  Receive Date: 20181025
  Receipt Date: 20181204
  Transmission Date: 20190205
  Serious: No
  Sender: FDA-Public Use
  Company Number: US-PFIZER INC-2018189101

PATIENT
  Age: 52 Year
  Sex: Female

DRUGS (1)
  1. IBRANCE [Suspect]
     Active Substance: PALBOCICLIB
     Indication: LUNG DISORDER
     Dosage: 125 MG, UNK

REACTIONS (3)
  - Malaise [Unknown]
  - White blood cell count decreased [Unknown]
  - Product use in unapproved indication [Unknown]
